FAERS Safety Report 8289420-5 (Version None)
Quarter: 2012Q2

REPORT INFORMATION
  Report Type: 
  Country: None (occurrence: None)
  Receive Date: 20120417
  Receipt Date: 20120405
  Transmission Date: 20120825
  Serious: Yes (Other)
  Sender: FDA-Public Use
  Company Number: US-JNJFOC-20120208330

PATIENT
  Sex: Male

DRUGS (6)
  1. SIMVASTATIN [Concomitant]
     Indication: BLOOD CHOLESTEROL
     Route: 065
  2. METOPROLOL TARTRATE [Concomitant]
     Indication: HYPERTENSION
     Route: 065
  3. REMICADE [Suspect]
     Indication: COLITIS ULCERATIVE
     Dosage: RECEIVED 12 INFUSIONS
     Route: 042
     Dates: start: 20100110, end: 20120213
  4. REMICADE [Suspect]
     Route: 042
     Dates: start: 20090501
  5. TYLENOL (CAPLET) [Concomitant]
     Indication: PREMEDICATION
     Route: 048
  6. BENADRYL [Concomitant]
     Indication: PREMEDICATION
     Route: 048

REACTIONS (9)
  - PALPITATIONS [None]
  - TACHYCARDIA [None]
  - HYPERHIDROSIS [None]
  - FACE OEDEMA [None]
  - DYSPNOEA [None]
  - PRURITUS [None]
  - BRONCHOSPASM [None]
  - INFUSION RELATED REACTION [None]
  - ANAPHYLACTIC REACTION [None]
